FAERS Safety Report 21959798 (Version 1)
Quarter: 2023Q1

REPORT INFORMATION
  Report Type: Spontaneous
  Country: US (occurrence: US)
  Receive Date: 20230206
  Receipt Date: 20230206
  Transmission Date: 20230418
  Serious: No
  Sender: FDA-Public Use
  Company Number: US-SUNOVION-2023SUN000202AA

PATIENT
  Sex: Female

DRUGS (1)
  1. LATUDA [Suspect]
     Active Substance: LURASIDONE HYDROCHLORIDE
     Indication: Bipolar disorder
     Dosage: 40 MG, BID (CUTTING THE  80 MG INTO HALF)
     Route: 048

REACTIONS (3)
  - Restlessness [Unknown]
  - Off label use [Unknown]
  - Therapeutic product effect increased [Unknown]
